FAERS Safety Report 9716769 (Version 1)
Quarter: 2013Q4

REPORT INFORMATION
  Report Type: Spontaneous
  Country: US (occurrence: None)
  Receive Date: 20131126
  Receipt Date: 20131126
  Transmission Date: 20140711
  Serious: Yes (Hospitalization)
  Sender: FDA-Public Use
  Company Number: None

PATIENT
  Age: 73 Year
  Sex: 0
  Weight: 44.45 kg

DRUGS (1)
  1. LOVENOX [Suspect]
     Indication: POSTOPERATIVE CARE

REACTIONS (5)
  - Hypotension [None]
  - Haemoglobin decreased [None]
  - Haematocrit decreased [None]
  - Blood creatinine increased [None]
  - Coagulation time prolonged [None]
